FAERS Safety Report 4416794-5 (Version None)
Quarter: 2004Q3

REPORT INFORMATION
  Report Type: 
  Country: None (occurrence: None)
  Receive Date: 20040802
  Receipt Date: 20040715
  Transmission Date: 20050211
  Serious: Yes (Hospitalization)
  Sender: FDA-Public Use
  Company Number: DSA_24683_2004

PATIENT
  Age: 20 Year
  Sex: Female

DRUGS (2)
  1. CARDIZEM [Suspect]
     Dosage: DF IV
     Route: 042
     Dates: start: 20021001, end: 20021001
  2. ^RIPPED TO THE MAX^ (SUPPLEMENT WITH EPHEDRA) [Concomitant]

REACTIONS (3)
  - BLINDNESS TRANSIENT [None]
  - HEART RATE INCREASED [None]
  - LOSS OF CONSCIOUSNESS [None]
